FAERS Safety Report 8429522-3 (Version None)
Quarter: 2012Q2

REPORT INFORMATION
  Report Type: 
  Country: None (occurrence: None)
  Receive Date: 20120612
  Receipt Date: 20120529
  Transmission Date: 20120825
  Serious: Yes (Other)
  Sender: FDA-Public Use
  Company Number: US-SANOFI-AVENTIS-2012SA031591

PATIENT
  Age: 66 Year
  Sex: Male
  Weight: 113.3 kg

DRUGS (8)
  1. LANTUS [Suspect]
     Indication: TYPE 1 DIABETES MELLITUS
     Dosage: DOSE:100 UNIT(S)
     Route: 058
     Dates: start: 20020101
  2. LANTUS [Suspect]
     Indication: TYPE 2 DIABETES MELLITUS
     Dosage: DOSE:100 UNIT(S)
     Route: 058
     Dates: start: 20020101
  3. APIDRA [Suspect]
     Dosage: PER SLIDING SCALE
     Route: 058
     Dates: start: 20090101
  4. LANTUS [Suspect]
     Dosage: IN THE MORNING DOSE:70 UNIT(S)
     Route: 058
  5. SOLOSTAR [Suspect]
     Indication: TYPE 2 DIABETES MELLITUS
     Dates: start: 20090101
  6. APIDRA [Suspect]
     Indication: TYPE 2 DIABETES MELLITUS
     Dosage: PER SLIDING SCALE
     Route: 058
     Dates: start: 20090101
  7. SOLOSTAR [Suspect]
     Dates: start: 20090101
  8. LANTUS [Suspect]
     Dosage: IN THE MORNING DOSE:70 UNIT(S)
     Route: 058

REACTIONS (3)
  - PANCREATIC DISORDER [None]
  - WEIGHT DECREASED [None]
  - DIABETES MELLITUS INADEQUATE CONTROL [None]
